FAERS Safety Report 17657870 (Version 3)
Quarter: 2020Q3

REPORT INFORMATION
  Report Type: Report from Study
  Country: US (occurrence: US)
  Receive Date: 20200411
  Receipt Date: 20200716
  Transmission Date: 20201102
  Serious: No
  Sender: FDA-Public Use
  Company Number: NVSC2020US096840

PATIENT
  Sex: Female
  Weight: 68.95 kg

DRUGS (2)
  1. MAYZENT [Suspect]
     Active Substance: SIPONIMOD
     Indication: MULTIPLE SCLEROSIS
     Dosage: 1 MG, QD (TABLET)
     Route: 048
     Dates: start: 20200328
  2. MAYZENT [Suspect]
     Active Substance: SIPONIMOD
     Dosage: 1 MG/KG
     Route: 048
     Dates: start: 20190328

REACTIONS (6)
  - Peripheral swelling [Unknown]
  - Hypersensitivity [Unknown]
  - Erythema [Unknown]
  - Sneezing [Unknown]
  - Fall [Unknown]
  - Cough [Unknown]
